FAERS Safety Report 24462013 (Version 1)
Quarter: 2024Q4

REPORT INFORMATION
  Report Type: Report from Study
  Country: US (occurrence: US)
  Receive Date: 20241018
  Receipt Date: 20241018
  Transmission Date: 20250115
  Serious: No
  Sender: ROCHE
  Company Number: US-ROCHE-3574434

PATIENT
  Age: 21 Year
  Sex: Male
  Weight: 95.25 kg

DRUGS (2)
  1. RITUXAN [Suspect]
     Active Substance: RITUXIMAB
     Indication: Immune thrombocytopenia
     Route: 042
     Dates: start: 20240212, end: 20240304
  2. DEXAMETHASONE [Concomitant]
     Active Substance: DEXAMETHASONE

REACTIONS (2)
  - Off label use [Unknown]
  - No adverse event [Unknown]

NARRATIVE: CASE EVENT DATE: 20240212
